FAERS Safety Report 11795528 (Version 1)
Quarter: 2015Q4

REPORT INFORMATION
  Report Type: Spontaneous
  Country: US (occurrence: US)
  Receive Date: 20151202
  Receipt Date: 20151202
  Transmission Date: 20160305
  Serious: No
  Sender: FDA-Public Use
  Company Number: US-MISSION PHARMACAL COMPANY-1044971

PATIENT
  Age: 46 Year
  Sex: Female

DRUGS (5)
  1. BENADRYL [Concomitant]
     Active Substance: DIPHENHYDRAMINE HYDROCHLORIDE
  2. THIOLA [Concomitant]
     Active Substance: TIOPRONIN
     Route: 065
     Dates: start: 20150806
  3. SINGULAIR [Concomitant]
     Active Substance: MONTELUKAST SODIUM
  4. POTASSIUM CITRATE. [Suspect]
     Active Substance: POTASSIUM CITRATE
     Indication: NEPHROLITHIASIS
  5. MUCINEX D [Concomitant]
     Active Substance: GUAIFENESIN\PSEUDOEPHEDRINE HYDROCHLORIDE

REACTIONS (9)
  - Urticaria [Unknown]
  - Dry skin [Unknown]
  - Gingival disorder [Unknown]
  - Ageusia [Unknown]
  - Rash generalised [Recovered/Resolved]
  - Sinus headache [Unknown]
  - Rash [Unknown]
  - Pruritus [Unknown]
  - Mass [Unknown]

NARRATIVE: CASE EVENT DATE: 20151014
